FAERS Safety Report 22255514 (Version 1)
Quarter: 2023Q2

REPORT INFORMATION
  Report Type: Report from Study
  Country: BR (occurrence: BR)
  Receive Date: 20230426
  Receipt Date: 20230426
  Transmission Date: 20230721
  Serious: Yes (Life-Threatening, Hospitalization)
  Sender: FDA-Public Use
  Company Number: BR-TAKEDA-BR201941204

PATIENT
  Age: 14 Year
  Sex: Male
  Weight: 37 kg

DRUGS (8)
  1. HEMO-8R [Suspect]
     Active Substance: ANTIHEMOPHILIC FACTOR, HUMAN RECOMBINANT
     Indication: Factor VIII deficiency
     Dosage: UNK
     Route: 042
     Dates: start: 20160720
  2. HEMO-8R [Suspect]
     Active Substance: ANTIHEMOPHILIC FACTOR, HUMAN RECOMBINANT
     Indication: Prophylaxis
     Dosage: 750 INTERNATIONAL UNIT
     Route: 042
     Dates: start: 20190703
  3. METAMIZOLE [Concomitant]
     Active Substance: METAMIZOLE
     Indication: Headache
     Dosage: UNK
  4. METAMIZOLE [Concomitant]
     Active Substance: METAMIZOLE
     Indication: Gastrointestinal pain
  5. METAMIZOLE [Concomitant]
     Active Substance: METAMIZOLE
     Indication: Pyrexia
  6. HISTAMIN [CHLORPHENAMINE MALEATE] [Concomitant]
     Indication: Hypersensitivity
     Dosage: UNK
  7. NIMESULIDE [Concomitant]
     Active Substance: NIMESULIDE
     Indication: Pain
     Dosage: UNK
  8. METOCLOPRAMIDE [Concomitant]
     Active Substance: METOCLOPRAMIDE
     Indication: Motion sickness
     Dosage: UNK

REACTIONS (2)
  - Abdominal pain [Recovered/Resolved]
  - Vomiting [Recovered/Resolved]

NARRATIVE: CASE EVENT DATE: 20190704
